FAERS Safety Report 5302761-6 (Version None)
Quarter: 2007Q2

REPORT INFORMATION
  Report Type: 
  Country: None (occurrence: None)
  Receive Date: 20070419
  Receipt Date: 20070406
  Transmission Date: 20071010
  Serious: Yes (Other)
  Sender: FDA-Public Use
  Company Number: FR-PFIZER INC-2007030540

PATIENT
  Sex: Male

DRUGS (3)
  1. NEURONTIN [Suspect]
     Indication: EPILEPSY
  2. FLUPENTIXOL DIHYDROCHLORIDE [Concomitant]
  3. ARIXTRA [Concomitant]
     Dates: start: 20060901

REACTIONS (1)
  - CYTOLYTIC HEPATITIS [None]
